FAERS Safety Report 7030767-8 (Version None)
Quarter: 2010Q4

REPORT INFORMATION
  Report Type: 
  Country: None (occurrence: None)
  Receive Date: 20101006
  Receipt Date: 20100928
  Transmission Date: 20110411
  Serious: No
  Sender: FDA-Public Use
  Company Number: US-PFIZER INC-2010102002

PATIENT
  Age: 70 Year
  Sex: Male
  Weight: 74.83 kg

DRUGS (1)
  1. LYRICA [Suspect]
     Indication: PROTEIN TOTAL
     Dosage: 75 MG, 3X/DAY

REACTIONS (1)
  - EYE IRRITATION [None]
